FAERS Safety Report 5763455-6 (Version None)
Quarter: 2008Q2

REPORT INFORMATION
  Report Type: 
  Country: None (occurrence: None)
  Receive Date: 20080605
  Receipt Date: 20080520
  Transmission Date: 20081010
  Serious: Yes (Life-Threatening)
  Sender: FDA-Public Use
  Company Number: 2008001176

PATIENT
  Age: 56 Year
  Sex: Male

DRUGS (9)
  1. ERLOTINIB (ERLOTINIB) (TABLET) (ERLOTINIB) [Suspect]
     Indication: LUNG ADENOCARCINOMA
     Dosage: (150 MG,QD), ORAL
     Route: 048
     Dates: start: 20080124, end: 20080329
  2. LIPITOR [Concomitant]
  3. DILTIAZEM HYDROCHLORIDE [Concomitant]
  4. NORVASC [Concomitant]
  5. FAMOTIDINE [Concomitant]
  6. ASPIRIN [Concomitant]
  7. LENDORM [Concomitant]
  8. NAIXAM(NAPROXEN SODIUM) [Concomitant]
  9. MS CONTIN [Concomitant]

REACTIONS (7)
  - ACTIVITIES OF DAILY LIVING IMPAIRED [None]
  - BRAIN NATRIURETIC PEPTIDE INCREASED [None]
  - DISEASE PROGRESSION [None]
  - FIBRIN D DIMER INCREASED [None]
  - LIVER DISORDER [None]
  - PULMONARY EMBOLISM [None]
  - PULMONARY HYPERTENSION [None]
